FAERS Safety Report 20438218 (Version 1)
Quarter: 2022Q1

REPORT INFORMATION
  Report Type: Spontaneous
  Country: US (occurrence: US)
  Receive Date: 20220207
  Receipt Date: 20220207
  Transmission Date: 20220423
  Serious: No
  Sender: FDA-Public Use
  Company Number: US-PFIZER INC-202101559212

PATIENT
  Age: 70 Year
  Sex: Female

DRUGS (1)
  1. IBRANCE [Suspect]
     Active Substance: PALBOCICLIB
     Dosage: 75 MG (75 MG (TAKE 1 TAB DAILY FOR 2 WEEKS ON, 2 WEEKS OFF))
     Dates: start: 20210901

REACTIONS (3)
  - Alopecia [Unknown]
  - Neutrophil count decreased [Unknown]
  - Off label use [Unknown]
